FAERS Safety Report 15119960 (Version 2)
Quarter: 2018Q3

REPORT INFORMATION
  Report Type: Spontaneous
  Country: DE (occurrence: DE)
  Receive Date: 20180709
  Receipt Date: 20180709
  Transmission Date: 20181010
  Serious: Yes (Life-Threatening, Hospitalization, Other)
  Sender: FDA-Public Use
  Company Number: PHHY2015DE108192

PATIENT
  Age: 30 Year
  Sex: Male

DRUGS (8)
  1. AMOXICILLIN. [Suspect]
     Active Substance: AMOXICILLIN
     Route: 048
  2. AMPICILLIN, SULBACTAM [Suspect]
     Active Substance: AMPICILLIN SODIUM\SULBACTAM SODIUM
  3. VANCOMYCIN [Suspect]
     Active Substance: VANCOMYCIN
     Indication: ENDOCARDITIS STAPHYLOCOCCAL
     Route: 065
  4. GENTAMICIN. [Suspect]
     Active Substance: GENTAMICIN
     Indication: ENDOCARDITIS STAPHYLOCOCCAL
     Route: 065
  5. CIPROFLOXACIN. [Suspect]
     Active Substance: CIPROFLOXACIN
  6. AMPICILLIN, SULBACTAM [Suspect]
     Active Substance: AMPICILLIN SODIUM\SULBACTAM SODIUM
     Indication: ENDOCARDITIS STAPHYLOCOCCAL
  7. AMOXICILLIN. [Suspect]
     Active Substance: AMOXICILLIN
     Indication: PYREXIA
     Route: 065
  8. BENZYLPENICILLIN [Suspect]
     Active Substance: PENICILLIN G
     Route: 042

REACTIONS (12)
  - Tachycardia [Recovered/Resolved]
  - Systemic inflammatory response syndrome [Unknown]
  - Hypervolaemia [Unknown]
  - Therapy non-responder [Unknown]
  - Oedema peripheral [Recovered/Resolved]
  - Renal impairment [Unknown]
  - Tachypnoea [Recovered/Resolved]
  - Hepatic enzyme increased [Unknown]
  - Hypotension [Recovering/Resolving]
  - Dyspnoea [Recovered/Resolved]
  - Conjunctivitis [Unknown]
  - Acute generalised exanthematous pustulosis [Recovering/Resolving]
